FAERS Safety Report 9608523 (Version 2)
Quarter: 2013Q4

REPORT INFORMATION
  Report Type: Report from Study
  Country: DE (occurrence: DE)
  Receive Date: 20131009
  Receipt Date: 20131009
  Transmission Date: 20140711
  Serious: Yes (Death, Life-Threatening, Hospitalization, Disabling)
  Sender: FDA-Public Use
  Company Number: DE-ROCHE-771801

PATIENT
  Age: 56 Year
  Sex: Male
  Weight: 78 kg

DRUGS (20)
  1. BEVACIZUMAB [Suspect]
     Indication: GLIOBLASTOMA
     Dosage: LAST DOSE PRIOR TO SAE ON 12/APR/2011
     Route: 042
  2. TEMOZOLOMIDE [Suspect]
     Indication: GLIOBLASTOMA
     Dosage: DATE OF LAST DOSE PRIOR TO SAE 24 OCT 2010
     Route: 048
  3. IRINOTECAN [Suspect]
     Indication: GLIOBLASTOMA
     Dosage: LAST DOSE PRIOR TO SAE ON 12/APR/2011
     Route: 042
  4. LEVETIRACETAM [Suspect]
     Indication: PRODUCT USED FOR UNKNOWN INDICATION
     Route: 065
  5. LORAZEPAM [Concomitant]
     Route: 065
     Dates: start: 20100910, end: 20110418
  6. PANTOPRAZOLE [Concomitant]
     Dosage: DOSE REPORTED AS: 0-0-1
     Route: 065
     Dates: start: 20100820, end: 20100907
  7. FORTECORTIN [Concomitant]
     Dosage: DOSE REPORTED AS: 1-1-1
     Route: 065
  8. FORTECORTIN [Concomitant]
     Route: 065
  9. FORTECORTIN [Concomitant]
     Route: 065
  10. FRAXIPARIN [Concomitant]
     Route: 065
     Dates: start: 20100820, end: 20100907
  11. SOBELIN [Concomitant]
     Dosage: DRUG REPORTED AS GLINDAMYCIN/SOBELIN
     Route: 065
     Dates: start: 20100919, end: 20100926
  12. HYPERICUM PERFORATUM [Concomitant]
     Dosage: DOSE REPORTED AS: 0-0-1
     Route: 065
  13. BAYOTENSIN [Concomitant]
     Route: 065
     Dates: start: 20110302, end: 20110302
  14. ONDANSETRON [Concomitant]
     Route: 065
     Dates: start: 20110316, end: 20110418
  15. DEXAMETHASONE [Concomitant]
     Route: 065
     Dates: start: 20100820, end: 20100820
  16. DEXAMETHASONE [Concomitant]
     Route: 065
     Dates: start: 20101213, end: 20110105
  17. DEXAMETHASONE [Concomitant]
     Route: 065
     Dates: start: 20110413, end: 20110428
  18. DEXAMETHASONE [Concomitant]
     Route: 065
     Dates: start: 20100821, end: 20100822
  19. DEXAMETHASONE [Concomitant]
     Route: 065
     Dates: start: 20100823, end: 20100824
  20. DEXAMETHASONE [Concomitant]
     Route: 065
     Dates: start: 20110429, end: 20110526

REACTIONS (2)
  - Neurological decompensation [Not Recovered/Not Resolved]
  - General physical health deterioration [Fatal]
